FAERS Safety Report 20729100 (Version 5)
Quarter: 2022Q4

REPORT INFORMATION
  Report Type: Report from Study
  Country: JP (occurrence: JP)
  Receive Date: 20220420
  Receipt Date: 20221221
  Transmission Date: 20230112
  Serious: Yes (Hospitalization, Other)
  Sender: FDA-Public Use
  Company Number: JP-NOVARTISPH-NVSJ2022JP006296

PATIENT
  Age: 36 Year
  Sex: Female
  Weight: 47 kg

DRUGS (22)
  1. MAYZENT [Suspect]
     Active Substance: SIPONIMOD
     Indication: Secondary progressive multiple sclerosis
     Dosage: 0.25 MG
     Route: 048
     Dates: start: 20201125
  2. MAYZENT [Suspect]
     Active Substance: SIPONIMOD
     Dosage: 0.25 MG
     Route: 048
     Dates: start: 20201223, end: 20201224
  3. MAYZENT [Suspect]
     Active Substance: SIPONIMOD
     Dosage: 0.5 MG
     Route: 048
     Dates: start: 20201225, end: 20201225
  4. MAYZENT [Suspect]
     Active Substance: SIPONIMOD
     Dosage: 0.75 MG
     Route: 048
     Dates: start: 20201226, end: 20201226
  5. MAYZENT [Suspect]
     Active Substance: SIPONIMOD
     Dosage: 1.25 MG
     Route: 048
     Dates: start: 20201227, end: 20201227
  6. MAYZENT [Suspect]
     Active Substance: SIPONIMOD
     Dosage: 2 MG
     Route: 048
     Dates: start: 20201228, end: 202103
  7. MAYZENT [Suspect]
     Active Substance: SIPONIMOD
     Dosage: 0.5 MG
     Route: 048
     Dates: start: 202103, end: 20210406
  8. MAYZENT [Suspect]
     Active Substance: SIPONIMOD
     Dosage: 1 MG
     Route: 048
     Dates: start: 20210407, end: 20210420
  9. MAYZENT [Suspect]
     Active Substance: SIPONIMOD
     Dosage: 0.25 MG
     Route: 048
     Dates: start: 20210421, end: 20210526
  10. MAYZENT [Suspect]
     Active Substance: SIPONIMOD
     Dosage: 0.5 MG
     Route: 048
     Dates: start: 20210527, end: 20210608
  11. MAYZENT [Suspect]
     Active Substance: SIPONIMOD
     Dosage: 0.75 MG
     Route: 048
     Dates: start: 20210609, end: 20210720
  12. MAYZENT [Suspect]
     Active Substance: SIPONIMOD
     Dosage: 1 MG
     Route: 048
     Dates: start: 20210721, end: 20210817
  13. MAYZENT [Suspect]
     Active Substance: SIPONIMOD
     Dosage: 1.25 MG
     Route: 048
     Dates: start: 20210818, end: 20220215
  14. MAYZENT [Suspect]
     Active Substance: SIPONIMOD
     Dosage: 1.5 MG
     Route: 048
     Dates: start: 20220216, end: 20220607
  15. MAYZENT [Suspect]
     Active Substance: SIPONIMOD
     Dosage: 1.25 MG
     Route: 048
     Dates: start: 20220608
  16. LYRICA [Concomitant]
     Active Substance: PREGABALIN
     Indication: Product used for unknown indication
     Dosage: UNK
     Route: 065
  17. LOXOPROFEN SODIUM [Concomitant]
     Active Substance: LOXOPROFEN SODIUM
     Indication: Product used for unknown indication
     Route: 065
  18. REBAMIPIDE [Concomitant]
     Active Substance: REBAMIPIDE
     Indication: Product used for unknown indication
     Route: 065
  19. TEGRETOL [Concomitant]
     Active Substance: CARBAMAZEPINE
     Indication: Product used for unknown indication
     Route: 065
  20. CODEINE PHOSPHATE [Concomitant]
     Active Substance: CODEINE PHOSPHATE
     Indication: Product used for unknown indication
     Route: 065
  21. LEVOFLOXACIN [Concomitant]
     Active Substance: LEVOFLOXACIN
     Indication: Product used for unknown indication
     Route: 065
  22. CALONAL [Concomitant]
     Active Substance: ACETAMINOPHEN
     Indication: Product used for unknown indication
     Route: 065

REACTIONS (7)
  - Breast cancer [Not Recovered/Not Resolved]
  - Lymphocyte count decreased [Not Recovered/Not Resolved]
  - White blood cell count decreased [Unknown]
  - Lymphopenia [Recovering/Resolving]
  - Dizziness [Recovered/Resolved]
  - Abdominal discomfort [Recovered/Resolved]
  - Herpes zoster [Recovered/Resolved]

NARRATIVE: CASE EVENT DATE: 20201125
